FAERS Safety Report 16202609 (Version 4)
Quarter: 2019Q4

REPORT INFORMATION
  Report Type: Spontaneous
  Country: US (occurrence: US)
  Receive Date: 20190416
  Receipt Date: 20191031
  Transmission Date: 20200122
  Serious: Yes (Other)
  Sender: FDA-Public Use
  Company Number: US-PFIZER INC-2019158511

PATIENT
  Age: 48 Year
  Sex: Female

DRUGS (1)
  1. XELJANZ [Suspect]
     Active Substance: TOFACITINIB CITRATE
     Indication: RHEUMATOID ARTHRITIS
     Dosage: 5 MG, 2X/DAY
     Route: 048
     Dates: start: 201902

REACTIONS (11)
  - Therapeutic product effect incomplete [Unknown]
  - Cough [Unknown]
  - Rotator cuff syndrome [Unknown]
  - Insomnia [Unknown]
  - Cervical spinal stenosis [Unknown]
  - Impaired healing [Unknown]
  - Sinusitis [Not Recovered/Not Resolved]
  - Red blood cell count increased [Unknown]
  - Tendon disorder [Unknown]
  - Peripheral swelling [Unknown]
  - Paraesthesia [Unknown]

NARRATIVE: CASE EVENT DATE: 2019
